FAERS Safety Report 5334285-4 (Version None)
Quarter: 2007Q2

REPORT INFORMATION
  Report Type: 
  Country: None (occurrence: None)
  Receive Date: 20070525
  Receipt Date: 20070514
  Transmission Date: 20071010
  Serious: Yes (Hospitalization)
  Sender: FDA-Public Use
  Company Number: PHEH2007US07402

PATIENT
  Age: 73 Year
  Sex: Female
  Weight: 68.934 kg

DRUGS (5)
  1. DIOVAN HCT [Suspect]
     Indication: HYPERTENSION
     Dosage: 160MG VAL/12.5MG HCT, QD
     Route: 048
     Dates: start: 20051129, end: 20070301
  2. NORVASC [Concomitant]
     Dosage: UNK, UNK
  3. ZETIA [Concomitant]
     Indication: BLOOD CHOLESTEROL INCREASED
     Dosage: UNK, UNK
     Route: 048
     Dates: start: 20030224
  4. LEVOTHYROXINE SODIUM [Concomitant]
     Indication: HYPOTHYROIDISM
     Dosage: UNK, UNK
     Route: 048
  5. NIASPAN [Concomitant]
     Indication: BLOOD CHOLESTEROL INCREASED
     Dosage: UNK, QOD
     Route: 048
     Dates: start: 20030224

REACTIONS (8)
  - BLOOD SODIUM DECREASED [None]
  - GASTROINTESTINAL HAEMORRHAGE [None]
  - GASTROINTESTINAL TUBE INSERTION [None]
  - GASTROINTESTINAL ULCER [None]
  - HELICOBACTER PYLORI IDENTIFICATION TEST POSITIVE [None]
  - LABORATORY TEST ABNORMAL [None]
  - MALAISE [None]
  - SINUSITIS [None]
